FAERS Safety Report 7317216-7 (Version None)
Quarter: 2011Q1

REPORT INFORMATION
  Report Type: 
  Country: None (occurrence: None)
  Receive Date: 20110226
  Receipt Date: 20101008
  Transmission Date: 20110831
  Serious: Yes (Death)
  Sender: FDA-Public Use
  Company Number: US-ALLERGAN-1012997US

PATIENT
  Sex: Female

DRUGS (1)
  1. BOTOXA? [Suspect]
     Indication: MULTIPLE SCLEROSIS
     Dosage: 100 UNITS, SINGLE
     Route: 030
     Dates: start: 20091104, end: 20100315

REACTIONS (1)
  - DEATH [None]
